FAERS Safety Report 16922457 (Version 2)
Quarter: 2019Q4

REPORT INFORMATION
  Report Type: Spontaneous
  Country: US (occurrence: US)
  Receive Date: 20191016
  Receipt Date: 20191212
  Transmission Date: 20200122
  Serious: Yes (Other)
  Sender: FDA-Public Use
  Company Number: US-GLENMARK PHARMACEUTICALS-2019GMK043556

PATIENT

DRUGS (1)
  1. ZONISAMIDE CAPSULES USP, 100MG [Suspect]
     Active Substance: ZONISAMIDE
     Indication: SEIZURE
     Dosage: UNK
     Route: 065
     Dates: start: 2018, end: 201811

REACTIONS (4)
  - Disorientation [Recovering/Resolving]
  - Drug ineffective [Unknown]
  - Myoclonic epilepsy [Recovering/Resolving]
  - Malaise [Recovering/Resolving]

NARRATIVE: CASE EVENT DATE: 2018
